FAERS Safety Report 21228865 (Version 3)
Quarter: 2022Q4

REPORT INFORMATION
  Report Type: Other
  Country: US (occurrence: None)
  Receive Date: 20220818
  Receipt Date: 20221205
  Transmission Date: 20230112
  Serious: No
  Sender: FDA-Public Use
  Company Number: US-ROCHE-3163092

PATIENT
  Age: 35 Year
  Sex: Female

DRUGS (1)
  1. OCREVUS [Suspect]
     Active Substance: OCRELIZUMAB
     Indication: Relapsing multiple sclerosis
     Dosage: INITIAL DOSE: 300 MG EVERY 2 WEEKS, DATE OF TREATMENT: 20-FEB-2021, 01-OCT-2021
     Route: 042

REACTIONS (1)
  - COVID-19 [Unknown]
